FAERS Safety Report 4690090-3 (Version None)
Quarter: 2005Q2

REPORT INFORMATION
  Report Type: 
  Country: None (occurrence: None)
  Receive Date: 20050614
  Receipt Date: 20050606
  Transmission Date: 20051028
  Serious: Yes (Death, Life-Threatening, Hospitalization)
  Sender: FDA-Public Use
  Company Number: DE9120723JUL2002

PATIENT
  Age: 67 Year
  Sex: Male

DRUGS (4)
  1. RAPAMUNE [Suspect]
     Indication: HYPERTENSION
     Dosage: 3 MG 1X PER 1 DAY,ORAL
     Route: 048
     Dates: start: 20020715, end: 20020813
  2. RAPAMUNE [Suspect]
     Indication: RENAL TRANSPLANT
     Dosage: 3 MG 1X PER 1 DAY,ORAL
     Route: 048
     Dates: start: 20020715, end: 20020813
  3. MERONEM (MEROPENEM) [Concomitant]
  4. CIPROFLOXACIN [Concomitant]

REACTIONS (9)
  - ANGIONEUROTIC OEDEMA [None]
  - CARDIAC PACEMAKER INSERTION [None]
  - CEREBRAL HAEMORRHAGE [None]
  - GENERAL PHYSICAL HEALTH DETERIORATION [None]
  - HAEMODIALYSIS [None]
  - LABILE HYPERTENSION [None]
  - PNEUMONIA [None]
  - RESPIRATORY FAILURE [None]
  - SINUSITIS [None]
